FAERS Safety Report 10077311 (Version 1)
Quarter: 2014Q2

REPORT INFORMATION
  Report Type: Spontaneous
  Country: DK (occurrence: FR)
  Receive Date: 20140414
  Receipt Date: 20140414
  Transmission Date: 20141212
  Serious: Yes (Hospitalization)
  Sender: FDA-Public Use
  Company Number: FR-FRI-1000066463

PATIENT
  Age: 83 Year
  Sex: Female

DRUGS (6)
  1. ESCITALOPRAM [Suspect]
     Dosage: 5 MG
     Route: 048
     Dates: end: 20140316
  2. BIPRETERAX [Suspect]
     Dosage: 5MG/ 1.25 MG
     Route: 048
     Dates: end: 20140316
  3. SECTRAL [Concomitant]
     Dosage: 100 MG
     Route: 048
  4. PREVISCAN [Concomitant]
     Dosage: 25 MG
     Route: 048
  5. LEVOTHYROX [Concomitant]
     Dosage: 125 MCG
     Route: 048
  6. EXELON [Concomitant]
     Route: 062

REACTIONS (3)
  - Hyponatraemia [Recovered/Resolved]
  - Cognitive disorder [Recovering/Resolving]
  - Drug interaction [Recovered/Resolved]
